FAERS Safety Report 17383879 (Version 1)
Quarter: 2020Q1

REPORT INFORMATION
  Report Type: Spontaneous
  Country: US (occurrence: US)
  Receive Date: 20200206
  Receipt Date: 20200206
  Transmission Date: 20200409
  Serious: No
  Sender: FDA-Public Use
  Company Number: US-ABBVIE-19K-163-2855406-00

PATIENT
  Sex: Female

DRUGS (1)
  1. HUMIRA [Suspect]
     Active Substance: ADALIMUMAB
     Indication: UVEITIS
     Route: 058
     Dates: start: 20190628, end: 2019

REACTIONS (7)
  - Paraesthesia [Unknown]
  - Muscle fatigue [Unknown]
  - C-reactive protein increased [Unknown]
  - Pain [Unknown]
  - Burning sensation [Unknown]
  - Antinuclear antibody increased [Unknown]
  - Muscular weakness [Unknown]

NARRATIVE: CASE EVENT DATE: 2019
